FAERS Safety Report 6596164-4 (Version None)
Quarter: 2010Q1

REPORT INFORMATION
  Report Type: 
  Country: None (occurrence: None)
  Receive Date: 20100223
  Receipt Date: 20100218
  Transmission Date: 20100710
  Serious: Yes (Hospitalization)
  Sender: FDA-Public Use
  Company Number: AT-ROCHE-522789

PATIENT
  Sex: Male
  Weight: 63.8 kg

DRUGS (7)
  1. CAPECITABINE [Suspect]
     Indication: COLON CANCER
     Route: 048
     Dates: start: 20070720
  2. CAPECITABINE [Suspect]
     Dosage: DOSE REDUCED
     Route: 048
     Dates: start: 20070825
  3. BEVACIZUMAB [Suspect]
     Indication: COLON CANCER
     Route: 042
     Dates: start: 20070720
  4. BEVACIZUMAB [Suspect]
     Dosage: DOSE REDUCED
     Route: 042
     Dates: start: 20070817
  5. DOMINAL FORTE [Suspect]
     Indication: INSOMNIA
     Dosage: DOSE: 1/2
     Route: 048
     Dates: start: 20070809
  6. CONCOR [Suspect]
     Indication: TACHYCARDIA
     Dosage: IN THE MORNING
     Route: 048
     Dates: start: 20070809
  7. PANTOPRAZOLE [Suspect]
     Indication: PROPHYLAXIS
     Dosage: DOSE: 1
     Route: 048
     Dates: start: 20070809

REACTIONS (3)
  - GENERAL PHYSICAL HEALTH DETERIORATION [None]
  - ILL-DEFINED DISORDER [None]
  - MUCOSAL INFLAMMATION [None]
